FAERS Safety Report 24890308 (Version 1)
Quarter: 2025Q1

REPORT INFORMATION
  Report Type: Spontaneous
  Country: US (occurrence: US)
  Receive Date: 20250127
  Receipt Date: 20250127
  Transmission Date: 20250408
  Serious: Yes (Other)
  Sender: CIPLA
  Company Number: US-CIPLA LTD.-2024US08505

PATIENT

DRUGS (2)
  1. ESCITALOPRAM [Suspect]
     Active Substance: ESCITALOPRAM OXALATE
     Route: 064
  2. HYDROXYZINE [Suspect]
     Active Substance: HYDROXYZINE HYDROCHLORIDE
     Route: 064

REACTIONS (6)
  - Neonatal asphyxia [Unknown]
  - Shoulder dystocia [Unknown]
  - Foetal exposure during pregnancy [Unknown]
  - Reflexes abnormal [Unknown]
  - Musculoskeletal stiffness [Unknown]
  - Feeling jittery [Unknown]
